FAERS Safety Report 23240309 (Version 1)
Quarter: 2023Q4

REPORT INFORMATION
  Report Type: Spontaneous
  Country: US (occurrence: None)
  Receive Date: 20231128
  Receipt Date: 20231128
  Transmission Date: 20240110
  Serious: Yes (Other)
  Sender: FDA-Public Use
  Company Number: None

PATIENT
  Age: 49 Year
  Sex: Male
  Weight: 148.5 kg

DRUGS (15)
  1. MOUNJARO [Suspect]
     Active Substance: TIRZEPATIDE
     Indication: Type 2 diabetes mellitus
     Dosage: OTHER QUANTITY : 4 INJECTION(S);?FREQUENCY : WEEKLY;?
     Route: 058
     Dates: start: 20231124, end: 20231124
  2. ADDERALL [Concomitant]
     Active Substance: AMPHETAMINE ASPARTATE\AMPHETAMINE SULFATE\DEXTROAMPHETAMINE SACCHARATE\DEXTROAMPHETAMINE SULFATE
  3. BELSOMRA [Concomitant]
     Active Substance: SUVOREXANT
  4. CELEXA [Concomitant]
     Active Substance: CITALOPRAM HYDROBROMIDE
  5. CRESTOR [Concomitant]
     Active Substance: ROSUVASTATIN CALCIUM
  6. METFORMIN [Concomitant]
     Active Substance: METFORMIN HYDROCHLORIDE
  7. PRILOSEC [Concomitant]
     Active Substance: OMEPRAZOLE MAGNESIUM
  8. PROPRANOLOL [Concomitant]
     Active Substance: PROPRANOLOL HYDROCHLORIDE
  9. SOLIFENACIN [Concomitant]
     Active Substance: SOLIFENACIN
  10. TESTOSTERONE [Concomitant]
     Active Substance: TESTOSTERONE
  11. UBRELVY [Concomitant]
     Active Substance: UBROGEPANT
  12. ZYRTEC [Concomitant]
     Active Substance: CETIRIZINE HYDROCHLORIDE
  13. VITAMIN D3 [Concomitant]
     Active Substance: CHOLECALCIFEROL
  14. CENTRUM FOR MEN [Concomitant]
  15. MELATONIN [Concomitant]
     Active Substance: MELATONIN

REACTIONS (3)
  - Gallbladder disorder [None]
  - Abdominal rigidity [None]
  - Therapy cessation [None]

NARRATIVE: CASE EVENT DATE: 20231125
